FAERS Safety Report 4488209-2 (Version None)
Quarter: 2004Q4

REPORT INFORMATION
  Report Type: 
  Country: None (occurrence: None)
  Receive Date: 20041026
  Receipt Date: 20041013
  Transmission Date: 20050328
  Serious: Yes (Other)
  Sender: FDA-Public Use
  Company Number: 2004077508

PATIENT
  Age: 55 Year
  Sex: Male

DRUGS (2)
  1. GEODON [Suspect]
     Indication: ILL-DEFINED DISORDER
     Dosage: 80 MG
  2. RISPERDAL [Suspect]
     Indication: ILL-DEFINED DISORDER
     Dosage: 1 MG

REACTIONS (1)
  - NEUROLEPTIC MALIGNANT SYNDROME [None]
